FAERS Safety Report 5584814-0 (Version None)
Quarter: 2008Q1

REPORT INFORMATION
  Report Type: 
  Country: None (occurrence: None)
  Receive Date: 20080104
  Receipt Date: 20071219
  Transmission Date: 20080703
  Serious: Yes (Other)
  Sender: FDA-Public Use
  Company Number: B0501241A

PATIENT
  Age: 9 Year
  Sex: Female

DRUGS (2)
  1. PAXIL [Suspect]
     Dates: start: 20020101
  2. SERTRALINE HYDROCHLORIDE [Suspect]
     Dates: start: 20020101

REACTIONS (2)
  - AGGRESSION [None]
  - SUICIDAL IDEATION [None]
